FAERS Safety Report 17361691 (Version 3)
Quarter: 2020Q3

REPORT INFORMATION
  Report Type: Spontaneous
  Country: US (occurrence: US)
  Receive Date: 20200203
  Receipt Date: 20200706
  Transmission Date: 20201102
  Serious: Yes (Other)
  Sender: FDA-Public Use
  Company Number: US-LEXICON PHARMACEUTICALS, INC-20-1606-00074

PATIENT
  Age: 90 Year
  Sex: Female

DRUGS (1)
  1. XERMELO [Suspect]
     Active Substance: TELOTRISTAT ETHYL
     Indication: CARCINOID SYNDROME
     Dates: start: 20191031

REACTIONS (3)
  - Neoplasm progression [Not Recovered/Not Resolved]
  - Hospice care [Not Recovered/Not Resolved]
  - Nausea [Not Recovered/Not Resolved]
